FAERS Safety Report 5602103-2 (Version None)
Quarter: 2008Q1

REPORT INFORMATION
  Report Type: 
  Country: None (occurrence: None)
  Receive Date: 20080125
  Receipt Date: 20080116
  Transmission Date: 20080703
  Serious: Yes (Other)
  Sender: FDA-Public Use
  Company Number: PHHY2008JP00584

PATIENT
  Sex: Female

DRUGS (1)
  1. DICLOFENAC SODIUM [Suspect]
     Indication: PYREXIA
     Dosage: 25 MG, 1 OR 2 SUPPOSITORY
     Route: 054

REACTIONS (4)
  - HAEMATOCHEZIA [None]
  - PSEUDODIVERTICULAR DISEASE [None]
  - RECTAL STENOSIS [None]
  - RECTAL ULCER HAEMORRHAGE [None]
